FAERS Safety Report 13316618 (Version 3)
Quarter: 2017Q2

REPORT INFORMATION
  Report Type: Other
  Country: IT (occurrence: IT)
  Receive Date: 20170310
  Receipt Date: 20170406
  Transmission Date: 20170830
  Serious: Yes (Life-Threatening, Hospitalization, Other)
  Sender: FDA-Public Use
  Company Number: IT-MACLEODS PHARMACEUTICALS US LTD-MAC2017004399

PATIENT

DRUGS (9)
  1. METFORMIN HYDROCHLORIDE. [Suspect]
     Active Substance: METFORMIN HYDROCHLORIDE
     Indication: TYPE 2 DIABETES MELLITUS
     Dosage: 1 GM, TID
     Route: 048
  2. LERCANIDIPINE [Concomitant]
     Active Substance: LERCANIDIPINE
     Indication: PRODUCT USED FOR UNKNOWN INDICATION
     Dosage: UNK
     Route: 065
  3. LOSARTAN POTASSIUM. [Suspect]
     Active Substance: LOSARTAN POTASSIUM
     Indication: PRODUCT USED FOR UNKNOWN INDICATION
     Dosage: UNK
     Route: 065
  4. DOXAZOSIN [Concomitant]
     Active Substance: DOXAZOSIN\DOXAZOSIN MESYLATE
     Indication: PRODUCT USED FOR UNKNOWN INDICATION
     Dosage: UNK
     Route: 065
  5. CELECOXIB. [Suspect]
     Active Substance: CELECOXIB
     Indication: PRODUCT USED FOR UNKNOWN INDICATION
     Dosage: UNK
     Route: 065
  6. ROSUVASTATIN. [Concomitant]
     Active Substance: ROSUVASTATIN
     Indication: PRODUCT USED FOR UNKNOWN INDICATION
     Dosage: UNK
     Route: 065
  7. L-THYROXINE SODIUM [Concomitant]
     Active Substance: LEVOTHYROXINE SODIUM
     Indication: PRODUCT USED FOR UNKNOWN INDICATION
     Dosage: UNK
     Route: 065
  8. HYDROCHLOROTHIAZIDE. [Concomitant]
     Active Substance: HYDROCHLOROTHIAZIDE
     Indication: PRODUCT USED FOR UNKNOWN INDICATION
     Dosage: UNK
     Route: 065
  9. ISULIN GLARGINE [Concomitant]
     Indication: PRODUCT USED FOR UNKNOWN INDICATION
     Dosage: UNK
     Route: 065

REACTIONS (21)
  - Cardiac arrest [Recovered/Resolved]
  - Metabolic acidosis [Recovered/Resolved]
  - Hyperkalaemia [Recovered/Resolved]
  - Lactic acidosis [Recovered/Resolved]
  - Diarrhoea [Recovered/Resolved]
  - Hypotension [Recovered/Resolved]
  - Toxicity to various agents [Recovered/Resolved]
  - Pulseless electrical activity [Recovered/Resolved]
  - Tachypnoea [Recovered/Resolved]
  - Respiratory gas exchange disorder [Recovered/Resolved]
  - Acute kidney injury [Recovered/Resolved]
  - Hypothermia [Recovered/Resolved]
  - Nausea [Recovered/Resolved]
  - Dyspnoea [Recovered/Resolved]
  - Neurological decompensation [Recovered/Resolved]
  - Confusional state [Recovered/Resolved]
  - Decreased appetite [Recovered/Resolved]
  - Oliguria [Recovered/Resolved]
  - Incorrect dose administered [Recovered/Resolved]
  - Accidental overdose [Recovered/Resolved]
  - Abdominal pain [Recovered/Resolved]
